FAERS Safety Report 16048381 (Version 6)
Quarter: 2020Q1

REPORT INFORMATION
  Report Type: Spontaneous
  Country: US (occurrence: US)
  Receive Date: 20190307
  Receipt Date: 20200131
  Transmission Date: 20200409
  Serious: Yes (Death, Other)
  Sender: FDA-Public Use
  Company Number: US-ASTRAZENECA-2018SE99612

PATIENT
  Age: 23313 Day
  Sex: Female

DRUGS (36)
  1. PRILOSEC OTC [Suspect]
     Active Substance: OMEPRAZOLE MAGNESIUM
     Indication: GASTROOESOPHAGEAL REFLUX DISEASE
     Route: 048
     Dates: start: 20070101, end: 20161101
  2. RANITIDINE. [Concomitant]
     Active Substance: RANITIDINE
  3. TRAMADOL. [Concomitant]
     Active Substance: TRAMADOL
  4. LYRICA [Concomitant]
     Active Substance: PREGABALIN
  5. OXYCODONE [Concomitant]
     Active Substance: OXYCODONE
  6. GABAPENTIN. [Concomitant]
     Active Substance: GABAPENTIN
  7. VITAMIN D [Concomitant]
     Active Substance: VITAMIN D NOS
  8. GLUCAGON. [Concomitant]
     Active Substance: GLUCAGON
  9. NEPHROCAPS [Concomitant]
     Active Substance: ASCORBIC ACID\BIOTIN\CYANOCOBALAMIN\FOLIC ACID\NIACIN\PANTOTHENIC ACID\PYRIDOXINE\RIBOFLAVIN\THIAMINE
     Dosage: 1 CAPSULE DAILY BY MOUTH
  10. PANTOPRAZOLE [Suspect]
     Active Substance: PANTOPRAZOLE
     Indication: GASTROOESOPHAGEAL REFLUX DISEASE
     Route: 065
     Dates: start: 20130710, end: 20140212
  11. LACTULOSE. [Concomitant]
     Active Substance: LACTULOSE
  12. COUMADIN [Concomitant]
     Active Substance: WARFARIN SODIUM
     Dates: start: 20131016
  13. METOPROLOL. [Concomitant]
     Active Substance: METOPROLOL
  14. NOVOLOG [Concomitant]
     Active Substance: INSULIN ASPART
     Dosage: 16 UNITS SUBCUTANEOUSLY FOR BREAKFAST AND DINNER
  15. CINACALCET. [Concomitant]
     Active Substance: CINACALCET
     Dosage: EVERY FRIDAY
  16. MORPHINE [Concomitant]
     Active Substance: MORPHINE
  17. PRILOSEC [Suspect]
     Active Substance: OMEPRAZOLE MAGNESIUM
     Indication: GASTROOESOPHAGEAL REFLUX DISEASE
     Dosage: GENERIC-20MG TWICE DAILY
     Route: 065
     Dates: start: 20071114, end: 20160920
  18. PANTOPRAZOLE [Suspect]
     Active Substance: PANTOPRAZOLE
     Indication: GASTROOESOPHAGEAL REFLUX DISEASE
     Route: 065
  19. MORPHINE [Concomitant]
     Active Substance: MORPHINE
  20. OXYCODONE [Concomitant]
     Active Substance: OXYCODONE
  21. CETRIZINE [Concomitant]
     Active Substance: CETIRIZINE HYDROCHLORIDE
  22. CALCIUM ACETATE. [Concomitant]
     Active Substance: CALCIUM ACETATE
  23. CALCITRIOL. [Concomitant]
     Active Substance: CALCITRIOL
     Dosage: BY MOUTH MONDAY AND FRIDAY
  24. K-DUR [Concomitant]
     Active Substance: POTASSIUM CHLORIDE
  25. NEXIUM [Suspect]
     Active Substance: ESOMEPRAZOLE MAGNESIUM
     Indication: GASTROOESOPHAGEAL REFLUX DISEASE
     Route: 048
     Dates: start: 20070101
  26. PRILOSEC [Suspect]
     Active Substance: OMEPRAZOLE MAGNESIUM
     Indication: GASTROOESOPHAGEAL REFLUX DISEASE
     Route: 048
     Dates: start: 20070101
  27. ASPIRIN. [Concomitant]
     Active Substance: ASPIRIN
     Dates: start: 20131016
  28. SIMVASTATIN. [Concomitant]
     Active Substance: SIMVASTATIN
  29. CYMBALTA [Concomitant]
     Active Substance: DULOXETINE HYDROCHLORIDE
  30. DIGOXIN. [Concomitant]
     Active Substance: DIGOXIN
     Dosage: EVERY 48 HOURS
  31. NEXIUM [Suspect]
     Active Substance: ESOMEPRAZOLE MAGNESIUM
     Indication: GASTROOESOPHAGEAL REFLUX DISEASE
     Route: 048
     Dates: start: 20070101, end: 20161101
  32. PRILOSEC [Suspect]
     Active Substance: OMEPRAZOLE MAGNESIUM
     Indication: GASTROOESOPHAGEAL REFLUX DISEASE
     Route: 048
     Dates: start: 20070101, end: 20161101
  33. PRILOSEC [Suspect]
     Active Substance: OMEPRAZOLE MAGNESIUM
     Indication: GASTROOESOPHAGEAL REFLUX DISEASE
     Dosage: GENERIC
     Route: 065
     Dates: start: 20120808
  34. PRILOSEC OTC [Suspect]
     Active Substance: OMEPRAZOLE MAGNESIUM
     Indication: GASTROOESOPHAGEAL REFLUX DISEASE
     Route: 048
     Dates: start: 20070101
  35. METHOCARBAMOL. [Concomitant]
     Active Substance: METHOCARBAMOL
  36. FUROSEMIDE. [Concomitant]
     Active Substance: FUROSEMIDE

REACTIONS (6)
  - Nephrogenic anaemia [Unknown]
  - Renal injury [Unknown]
  - End stage renal disease [Unknown]
  - Acute kidney injury [Unknown]
  - Death [Fatal]
  - Chronic kidney disease [Unknown]

NARRATIVE: CASE EVENT DATE: 20100108
